FAERS Safety Report 25990034 (Version 1)
Quarter: 2025Q4

REPORT INFORMATION
  Report Type: Spontaneous
  Country: US (occurrence: None)
  Receive Date: 20251102
  Receipt Date: 20251102
  Transmission Date: 20260117
  Serious: Yes (Other)
  Sender: FDA-CTU
  Company Number: None

PATIENT
  Age: 81 Year
  Sex: Female
  Weight: 78.75 kg

DRUGS (2)
  1. SOMATULINE DEPOT [Suspect]
     Active Substance: LANREOTIDE ACETATE
     Indication: Pulmonary mass
     Dosage: FREQUENCY : MONTHLY;?
     Dates: start: 20250521, end: 20250925
  2. SOMATULINE DEPOT [Concomitant]
     Active Substance: LANREOTIDE ACETATE

REACTIONS (4)
  - Pruritus [None]
  - Vulvovaginal pruritus [None]
  - Hypersensitivity [None]
  - Constipation [None]

NARRATIVE: CASE EVENT DATE: 20251022
